FAERS Safety Report 5452167-4 (Version None)
Quarter: 2007Q3

REPORT INFORMATION
  Report Type: 
  Country: None (occurrence: None)
  Receive Date: 20070914
  Receipt Date: 20070905
  Transmission Date: 20080115
  Serious: Yes (Other)
  Sender: FDA-Public Use
  Company Number: PHRM2007FR02153

PATIENT
  Age: 27 Year
  Sex: Male

DRUGS (4)
  1. LEPONEX [Suspect]
     Indication: SCHIZOPHRENIA
     Dosage: 600 MG/DAY
     Route: 048
     Dates: start: 20070101
  2. ATHYMIL [Concomitant]
     Route: 048
     Dates: start: 20010401
  3. ATARAX /POR/ [Concomitant]
     Route: 048
  4. IMOVANE [Concomitant]
     Route: 048

REACTIONS (4)
  - ABNORMAL BEHAVIOUR [None]
  - ANXIETY [None]
  - DYSKINESIA [None]
  - FALL [None]
